FAERS Safety Report 5103232-2 (Version None)
Quarter: 2006Q3

REPORT INFORMATION
  Report Type: 
  Country: None (occurrence: None)
  Receive Date: 20060908
  Receipt Date: 20060829
  Transmission Date: 20061208
  Serious: Yes (Other)
  Sender: FDA-Public Use
  Company Number: 2006JP002212

PATIENT
  Age: 72 Year
  Sex: Male
  Weight: 69 kg

DRUGS (6)
  1. VESICARE [Suspect]
     Indication: POLLAKIURIA
     Dosage: 5 MG UID/QD ORAL
     Route: 048
     Dates: start: 20060615, end: 20060618
  2. SEPAMIT R                            CAPSULE [Concomitant]
  3. CARVEDILOL [Concomitant]
  4. DAONIL [Concomitant]
  5. ALOSENN (TARAXACUM OFFICINALE, ACHILLEA MILLEFOLIUM, SENNA ALEXANDRA F [Concomitant]
  6. ASPIRIN [Concomitant]

REACTIONS (1)
  - DYSURIA [None]
